FAERS Safety Report 15680479 (Version 4)
Quarter: 2020Q1

REPORT INFORMATION
  Report Type: Report from Study
  Country: CA (occurrence: CA)
  Receive Date: 20181203
  Receipt Date: 20200113
  Transmission Date: 20200409
  Serious: Yes (Hospitalization, Other)
  Sender: FDA-Public Use
  Company Number: PHHY2018CA166878

PATIENT
  Sex: Male
  Weight: .75 kg

DRUGS (1)
  1. GILENYA [Suspect]
     Active Substance: FINGOLIMOD HYDROCHLORIDE
     Indication: FOETAL EXPOSURE DURING PREGNANCY
     Dosage: MATERNAL DOSE: 0.5 MG QD
     Route: 064

REACTIONS (9)
  - Influenza [Unknown]
  - Anaemia [Unknown]
  - Low birth weight baby [Unknown]
  - Foetal exposure during pregnancy [Unknown]
  - Premature baby [Unknown]
  - Brain malformation [Unknown]
  - Inguinal hernia [Unknown]
  - Respiratory disorder [Unknown]
  - Pericardial effusion [Unknown]
